FAERS Safety Report 7557568-6 (Version None)
Quarter: 2011Q2

REPORT INFORMATION
  Report Type: 
  Country: None (occurrence: None)
  Receive Date: 20110610
  Receipt Date: 20110530
  Transmission Date: 20111010
  Serious: Yes (Other)
  Sender: FDA-Public Use
  Company Number: 2011P1006991

PATIENT
  Age: 24 Year
  Sex: Female

DRUGS (2)
  1. ALBEMZA (ALBENDAZOLE) (NO. PROF. NAME) [Suspect]
     Indication: DRUG EXPOSURE DURING PREGNANCY
     Dosage: 2 TABLETS; X1; PO
     Route: 048
     Dates: start: 20100730, end: 20100730
  2. ALBEMZA (ALBENDAZOLE) (NO. PROF. NAME) [Suspect]
     Indication: PARASITIC INFECTION PROPHYLAXIS
     Dosage: 2 TABLETS; X1; PO
     Route: 048
     Dates: start: 20100730, end: 20100730

REACTIONS (2)
  - ABORTION INDUCED [None]
  - DRUG EXPOSURE DURING PREGNANCY [None]
